FAERS Safety Report 15767592 (Version 2)
Quarter: 2019Q1

REPORT INFORMATION
  Report Type: Spontaneous
  Country: US (occurrence: US)
  Receive Date: 20181227
  Receipt Date: 20190119
  Transmission Date: 20190417
  Serious: No
  Sender: FDA-Public Use
  Company Number: US-JNJFOC-20181140638

PATIENT
  Age: 78 Year
  Sex: Male

DRUGS (5)
  1. IMBRUVICA [Suspect]
     Active Substance: IBRUTINIB
     Indication: CHRONIC LYMPHOCYTIC LEUKAEMIA
     Route: 065
     Dates: start: 201801
  2. AZOPT [Concomitant]
     Active Substance: BRINZOLAMIDE
     Dosage: INSTILL 1 DROP 3 TIMES EVERY DAY
  3. LOVENOX [Suspect]
     Active Substance: ENOXAPARIN SODIUM
     Indication: ATRIAL THROMBOSIS
     Route: 065
  4. COMBIGAN [Concomitant]
     Active Substance: BRIMONIDINE TARTRATE\TIMOLOL MALEATE
     Dosage: INSTILL 1 DROP 3 TIMES EVERY 12 HOURS
     Route: 047
  5. LOVENOX [Suspect]
     Active Substance: ENOXAPARIN SODIUM
     Indication: ATRIAL FIBRILLATION
     Route: 065

REACTIONS (7)
  - Blood potassium increased [Recovering/Resolving]
  - Product use issue [Unknown]
  - Blood sodium decreased [Unknown]
  - Blood glucose abnormal [Recovering/Resolving]
  - Pneumonia [Unknown]
  - Off label use [Unknown]
  - Injection site bruising [Unknown]

NARRATIVE: CASE EVENT DATE: 201801
